FAERS Safety Report 12343794 (Version 2)
Quarter: 2016Q2

REPORT INFORMATION
  Report Type: Report from Study
  Country: MX (occurrence: MX)
  Receive Date: 20160507
  Receipt Date: 20160531
  Transmission Date: 20160815
  Serious: Yes (Death, Other)
  Sender: FDA-Public Use
  Company Number: MX-AMGEN-MEXNI2016058124

PATIENT
  Age: 29 Year
  Sex: Female
  Weight: 36 kg

DRUGS (1)
  1. BLINATUMOMAB [Suspect]
     Active Substance: BLINATUMOMAB
     Indication: ACUTE LYMPHOCYTIC LEUKAEMIA
     Route: 065

REACTIONS (4)
  - Cytokine release syndrome [Unknown]
  - Brain death [Fatal]
  - Cerebral haemorrhage [Fatal]
  - Pneumonia [Unknown]

NARRATIVE: CASE EVENT DATE: 20160502
